FAERS Safety Report 11603474 (Version 1)
Quarter: 2015Q4

REPORT INFORMATION
  Report Type: Spontaneous
  Country: US (occurrence: None)
  Receive Date: 20151006
  Receipt Date: 20151006
  Transmission Date: 20160304
  Serious: No
  Sender: FDA-Public Use
  Company Number: None

PATIENT
  Age: 54 Year
  Sex: Male

DRUGS (3)
  1. DOXAZOSIN [Concomitant]
     Active Substance: DOXAZOSIN\DOXAZOSIN MESYLATE
  2. CHANTIX [Concomitant]
     Active Substance: VARENICLINE TARTRATE
  3. HARVONI [Suspect]
     Active Substance: LEDIPASVIR\SOFOSBUVIR
     Indication: HEPATITIS
     Route: 048
     Dates: start: 20150108, end: 20150608

REACTIONS (2)
  - Viral load increased [None]
  - Hepatic function abnormal [None]

NARRATIVE: CASE EVENT DATE: 20150908
